FAERS Safety Report 4314347-0 (Version None)
Quarter: 2004Q1

REPORT INFORMATION
  Report Type: 
  Country: None (occurrence: None)
  Receive Date: 20040308
  Receipt Date: 20040227
  Transmission Date: 20041129
  Serious: Yes (Hospitalization, Other)
  Sender: FDA-Public Use
  Company Number: 2004UW02849

PATIENT
  Age: 65 Year
  Sex: Female
  Weight: 47.6277 kg

DRUGS (6)
  1. IRESSA [Suspect]
     Indication: LUNG NEOPLASM MALIGNANT
     Dates: start: 20031101, end: 20031201
  2. IRESSA [Suspect]
     Indication: LUNG NEOPLASM MALIGNANT
     Dates: start: 20040201
  3. MULTI-VITAMINS [Concomitant]
  4. BENTYL [Concomitant]
  5. MEGACE [Concomitant]
  6. SINGULAIR [Concomitant]

REACTIONS (3)
  - DYSPNOEA [None]
  - PHARMACEUTICAL PRODUCT COMPLAINT [None]
  - PNEUMONIA [None]
